FAERS Safety Report 5961631-0 (Version None)
Quarter: 2008Q4

REPORT INFORMATION
  Report Type: 
  Country: None (occurrence: None)
  Receive Date: 20081119
  Receipt Date: 20081105
  Transmission Date: 20090506
  Serious: Yes (Other)
  Sender: FDA-Public Use
  Company Number: IDA-00150

PATIENT
  Sex: Female

DRUGS (1)
  1. INDERAL [Suspect]
     Indication: BASEDOW'S DISEASE
     Dosage: TRANSPLACENTAL:  FORMULATION:  TABLET
     Route: 064

REACTIONS (4)
  - BASEDOW'S DISEASE [None]
  - MATERNAL DEATH AFFECTING FOETUS [None]
  - NEONATAL DISORDER [None]
  - TACHYCARDIA [None]
